FAERS Safety Report 17361358 (Version 1)
Quarter: 2020Q1

REPORT INFORMATION
  Report Type: Other
  Country: US (occurrence: US)
  Receive Date: 20200203
  Receipt Date: 20200203
  Transmission Date: 20200409
  Serious: No
  Sender: FDA-Public Use
  Company Number: US-CSPC OUYI PHARMACEUTICAL CO., LTD.-2079733

PATIENT

DRUGS (1)
  1. METFORMIN HYDROCHLORIDE EXTEND-RELEASE [Suspect]
     Active Substance: METFORMIN HYDROCHLORIDE

REACTIONS (4)
  - Abdominal distension [None]
  - Constipation [None]
  - Headache [None]
  - Nausea [None]

NARRATIVE: CASE EVENT DATE: 20180701
